FAERS Safety Report 7826142-6 (Version None)
Quarter: 2011Q4

REPORT INFORMATION
  Report Type: 
  Country: None (occurrence: None)
  Receive Date: 20111019
  Receipt Date: 20111010
  Transmission Date: 20120403
  Serious: Yes (Hospitalization, Other)
  Sender: FDA-Public Use
  Company Number: US-ASTRAZENECA-2011SE57981

PATIENT
  Age: 53 Year
  Sex: Female

DRUGS (6)
  1. AMITRIPTYLINE HCL [Suspect]
     Route: 065
  2. WELLBUTRIN [Concomitant]
  3. SEROQUEL [Suspect]
     Indication: DEPRESSION
     Route: 048
  4. NEXIUM [Suspect]
     Route: 048
  5. PROPRANOLOL [Suspect]
     Route: 065
     Dates: end: 20110831
  6. CRESTOR [Suspect]
     Route: 048

REACTIONS (16)
  - ANKLE FRACTURE [None]
  - THINKING ABNORMAL [None]
  - HEADACHE [None]
  - NAUSEA [None]
  - VERTIGO [None]
  - DRUG DOSE OMISSION [None]
  - HYPOAESTHESIA [None]
  - CRUSH INJURY [None]
  - FALL [None]
  - PANIC ATTACK [None]
  - POISONING [None]
  - DRUG LEVEL INCREASED [None]
  - DIZZINESS [None]
  - HEART RATE DECREASED [None]
  - HYPOGLYCAEMIA [None]
  - RASH GENERALISED [None]
